FAERS Safety Report 5351874-1 (Version None)
Quarter: 2007Q2

REPORT INFORMATION
  Report Type: 
  Country: None (occurrence: None)
  Receive Date: 20070609
  Receipt Date: 20070529
  Transmission Date: 20071010
  Serious: Yes (Other)
  Sender: FDA-Public Use
  Company Number: IE-ABBOTT-07P-229-0364085-00

PATIENT
  Age: 57 Year
  Sex: Male

DRUGS (3)
  1. KLACID FORTE [Suspect]
     Indication: HELICOBACTER INFECTION
  2. ESOMEPRAZOLE MAGNESIUM [Suspect]
     Indication: HELICOBACTER INFECTION
  3. AMOXICILLIN TRIHYDRATE [Suspect]
     Indication: HELICOBACTER INFECTION

REACTIONS (6)
  - ABDOMINAL PAIN UPPER [None]
  - DIARRHOEA [None]
  - HEADACHE [None]
  - IMPAIRED WORK ABILITY [None]
  - NAUSEA [None]
  - PHARYNGOLARYNGEAL PAIN [None]
